FAERS Safety Report 6115488-8 (Version None)
Quarter: 2009Q1

REPORT INFORMATION
  Report Type: 
  Country: None (occurrence: None)
  Receive Date: 20090313
  Receipt Date: 20090305
  Transmission Date: 20090719
  Serious: Yes (Other)
  Sender: FDA-Public Use
  Company Number: US-ABBOTT-09P-163-0561003-00

PATIENT
  Sex: Female
  Weight: 98.972 kg

DRUGS (12)
  1. HUMIRA [Suspect]
     Indication: RHEUMATOID ARTHRITIS
     Dates: start: 20081001
  2. METHOTREXATE [Concomitant]
     Indication: RHEUMATOID ARTHRITIS
     Route: 048
  3. INDOCIN [Concomitant]
     Indication: OSTEOARTHRITIS
  4. FOLIC ACID [Concomitant]
     Indication: PROPHYLAXIS
  5. LYRICA [Concomitant]
     Indication: FIBROMYALGIA
     Route: 048
  6. EFFEXOR XR [Concomitant]
     Indication: DEPRESSION
  7. LORITAB [Concomitant]
     Indication: PAIN
  8. CALCIUM [Concomitant]
     Indication: MEDICAL DIET
     Route: 048
  9. VITAMIN D3 [Concomitant]
     Indication: MEDICAL DIET
     Route: 048
  10. OSTEOBIFLEX [Concomitant]
     Indication: FIBROMYALGIA
  11. OSTEOBIFLEX [Concomitant]
     Indication: RHEUMATOID ARTHRITIS
  12. VITAMIN B-12 [Concomitant]
     Indication: NEUROPATHY PERIPHERAL
     Route: 048

REACTIONS (6)
  - FALL [None]
  - INJECTION SITE HAEMORRHAGE [None]
  - LIGAMENT RUPTURE [None]
  - MENISCUS LESION [None]
  - TIBIA FRACTURE [None]
  - WRONG TECHNIQUE IN DRUG USAGE PROCESS [None]
